FAERS Safety Report 6565439-7 (Version None)
Quarter: 2010Q1

REPORT INFORMATION
  Report Type: 
  Country: None (occurrence: None)
  Receive Date: 20100201
  Receipt Date: 20100120
  Transmission Date: 20100710
  Serious: Yes (Hospitalization)
  Sender: FDA-Public Use
  Company Number: PHEH2010US01115

PATIENT
  Sex: Female

DRUGS (1)
  1. GENTEAL PM LUBRICANT EYE OINTMENT [Suspect]
     Dosage: UNK

REACTIONS (2)
  - TRANSIENT ISCHAEMIC ATTACK [None]
  - VISION BLURRED [None]
